FAERS Safety Report 22973853 (Version 3)
Quarter: 2023Q4

REPORT INFORMATION
  Report Type: Report from Study
  Country: IE (occurrence: IE)
  Receive Date: 20230922
  Receipt Date: 20231013
  Transmission Date: 20240110
  Serious: Yes (Hospitalization, Other)
  Sender: FDA-Public Use
  Company Number: IE-BRISTOL-MYERS SQUIBB COMPANY-2023-093575

PATIENT
  Age: 64 Year
  Sex: Female
  Weight: 54.1 kg

DRUGS (5)
  1. RELATLIMAB [Suspect]
     Active Substance: RELATLIMAB
     Indication: Colon cancer
     Dosage: MOST RECENT DOSE PRIOR TO THE ONSET OF THE EVENT WAS ON 13-JUN-2023.?STUDY THERAPY DOSE WAS DELAYED
     Route: 042
     Dates: start: 20171212
  2. RELATLIMAB [Suspect]
     Active Substance: RELATLIMAB
     Indication: Hereditary non-polyposis colorectal cancer syndrome
  3. SERTRALINE [Concomitant]
     Active Substance: SERTRALINE HYDROCHLORIDE
     Indication: Product used for unknown indication
     Dates: start: 201709
  4. ENOXAPARIN SODIUM [Concomitant]
     Active Substance: ENOXAPARIN SODIUM
     Indication: Product used for unknown indication
     Dates: start: 20180104
  5. LEVOTHYROXINE [Concomitant]
     Active Substance: LEVOTHYROXINE
     Indication: Product used for unknown indication
     Dates: start: 20180517

REACTIONS (1)
  - Enterocolitis [Recovered/Resolved]

NARRATIVE: CASE EVENT DATE: 20230618
